FAERS Safety Report 14814959 (Version 1)
Quarter: 2018Q2

REPORT INFORMATION
  Report Type: Spontaneous
  Country: RS (occurrence: RS)
  Receive Date: 20180426
  Receipt Date: 20180426
  Transmission Date: 20180711
  Serious: Yes (Other)
  Sender: FDA-Public Use
  Company Number: RS-009507513-1804SRB010557

PATIENT
  Sex: Female

DRUGS (1)
  1. FOSAVANCE [Suspect]
     Active Substance: ALENDRONATE SODIUM\CHOLECALCIFEROL
     Indication: OSTEOPOROSIS
     Dosage: 1 TABLET WEEKLY
     Route: 048

REACTIONS (2)
  - Asphyxia [Recovered/Resolved]
  - Swollen tongue [Recovered/Resolved]
